FAERS Safety Report 15834071 (Version 1)
Quarter: 2019Q1

REPORT INFORMATION
  Report Type: Spontaneous
  Country: US (occurrence: US)
  Receive Date: 20190116
  Receipt Date: 20190116
  Transmission Date: 20190417
  Serious: Yes (Other)
  Sender: FDA-Public Use
  Company Number: US-UPSHER-SMITH LABORATORIES, LLC-2018USL00660

PATIENT
  Age: 32 Year
  Sex: Female
  Weight: 38.55 kg

DRUGS (5)
  1. BACLOFEN. [Suspect]
     Active Substance: BACLOFEN
     Indication: SEIZURE
     Dosage: 10 MG, 1X/DAY IN THE EVENING
     Route: 048
     Dates: start: 201809
  2. BACLOFEN. [Suspect]
     Active Substance: BACLOFEN
     Indication: MUSCLE SPASMS
     Dosage: 5 MG, 1X/DAY IN THE MORNING
     Route: 048
     Dates: start: 201809, end: 201901
  3. ^GENERIC ONFI^ [Concomitant]
     Dosage: 5 MG, 1X/DAY IN THE MORNING
     Route: 048
  4. ^GENERIC ONFI^ [Concomitant]
     Dosage: 2.5 MG, 1X/DAY AT NIGHT
     Route: 048
  5. BACLOFEN. [Suspect]
     Active Substance: BACLOFEN
     Dosage: 7.5 MG, 1X/DAY IN THE MORNING
     Route: 048
     Dates: start: 201901

REACTIONS (6)
  - Depressed mood [Unknown]
  - Mood altered [Unknown]
  - Drug ineffective [Recovered/Resolved]
  - Unevaluable event [Unknown]
  - Muscle spasms [Recovered/Resolved]
  - Seizure [Recovered/Resolved]

NARRATIVE: CASE EVENT DATE: 201809
